FAERS Safety Report 11281846 (Version 1)
Quarter: 2015Q3

REPORT INFORMATION
  Report Type: Spontaneous
  Country: GR (occurrence: GR)
  Receive Date: 20150717
  Receipt Date: 20150717
  Transmission Date: 20151125
  Serious: Yes (Other)
  Sender: FDA-Public Use
  Company Number: GR-009507513-1507GRC007674

PATIENT
  Age: 80 Year
  Sex: Male

DRUGS (1)
  1. JANUMET [Suspect]
     Active Substance: METFORMIN HYDROCHLORIDE\SITAGLIPTIN PHOSPHATE
     Indication: DIABETES MELLITUS
     Dosage: 2 TB EVERY DAY
     Route: 048
     Dates: start: 201407

REACTIONS (2)
  - Gastric operation [Unknown]
  - Pancreatic operation [Unknown]

NARRATIVE: CASE EVENT DATE: 20150407
